FAERS Safety Report 5150545-4 (Version None)
Quarter: 2006Q4

REPORT INFORMATION
  Report Type: 
  Country: None (occurrence: None)
  Receive Date: 20061110
  Receipt Date: 20061110
  Transmission Date: 20070319
  Serious: No
  Sender: FDA-Public Use
  Company Number: None

PATIENT
  Sex: Female
  Weight: 81.6475 kg

DRUGS (2)
  1. PAIN RELIEVER     500 MG  EA    EQUATE [Suspect]
     Indication: HEADACHE
     Dosage: 2 PILLS  AS NEEDED  PO
     Route: 048
     Dates: start: 20061001, end: 20061107
  2. PAIN RELIEVER     500 MG  EA    EQUATE [Suspect]
     Indication: MUSCULOSKELETAL PAIN
     Dosage: 2 PILLS  AS NEEDED  PO
     Route: 048
     Dates: start: 20061001, end: 20061107

REACTIONS (4)
  - HYPOMENORRHOEA [None]
  - MENSTRUATION IRREGULAR [None]
  - PHARMACEUTICAL PRODUCT COMPLAINT [None]
  - POOR QUALITY DRUG ADMINISTERED [None]
